FAERS Safety Report 6941704-6 (Version None)
Quarter: 2010Q3

REPORT INFORMATION
  Report Type: 
  Country: None (occurrence: None)
  Receive Date: 20100826
  Receipt Date: 20100818
  Transmission Date: 20110219
  Serious: Yes (Hospitalization)
  Sender: FDA-Public Use
  Company Number: US-BIOGENIDEC-2010BI027471

PATIENT
  Age: 54 Year
  Sex: Female

DRUGS (20)
  1. TYSABRI [Suspect]
     Indication: MULTIPLE SCLEROSIS
     Route: 042
     Dates: start: 20100302, end: 20100524
  2. CYMBALTA [Concomitant]
  3. NEURONTIN [Concomitant]
  4. VENTOLIN [Concomitant]
  5. LIPITOR [Concomitant]
  6. ELAVIL [Concomitant]
  7. LORTAB [Concomitant]
  8. MELOXICAM [Concomitant]
  9. LEVOXYL [Concomitant]
  10. RITALIN [Concomitant]
  11. FOSAMAX PLUS D [Concomitant]
  12. NEXIUM [Concomitant]
  13. ANTIVERT [Concomitant]
  14. LUNESTA [Concomitant]
  15. NORVASC [Concomitant]
  16. MIRAPEX [Concomitant]
  17. MACRODANTIN [Concomitant]
  18. VESICARE [Concomitant]
  19. SYMBICORT [Concomitant]
     Route: 055
  20. SLIDING SCALE INSULIN [Concomitant]

REACTIONS (4)
  - BRONCHITIS [None]
  - INFUSION RELATED REACTION [None]
  - MULTIPLE SCLEROSIS RELAPSE [None]
  - SINUSITIS [None]
